FAERS Safety Report 24969493 (Version 2)
Quarter: 2025Q1

REPORT INFORMATION
  Report Type: Spontaneous
  Country: US (occurrence: US)
  Receive Date: 20250214
  Receipt Date: 20250228
  Transmission Date: 20250408
  Serious: Yes (Other)
  Sender: ABBVIE
  Company Number: US-ABBVIE-6132105

PATIENT
  Age: 67 Year
  Sex: Female

DRUGS (1)
  1. REFRESH CLASSIC [Suspect]
     Active Substance: POLYVINYL ALCOHOL\POVIDONE
     Indication: Dry eye
     Route: 047
     Dates: start: 2015

REACTIONS (11)
  - Gastric cancer [Not Recovered/Not Resolved]
  - Parkinson^s disease [Not Recovered/Not Resolved]
  - Pain [Unknown]
  - Raynaud^s phenomenon [Not Recovered/Not Resolved]
  - Foreign body sensation in eyes [Unknown]
  - Dizziness [Not Recovered/Not Resolved]
  - Eye pain [Unknown]
  - Atrial fibrillation [Not Recovered/Not Resolved]
  - Therapeutic product effect decreased [Unknown]
  - Tachycardia [Not Recovered/Not Resolved]
  - Off label use [Unknown]

NARRATIVE: CASE EVENT DATE: 20180101
